FAERS Safety Report 8351271-0 (Version None)
Quarter: 2012Q2

REPORT INFORMATION
  Report Type: 
  Country: None (occurrence: None)
  Receive Date: 20120510
  Receipt Date: 20120507
  Transmission Date: 20120825
  Serious: No
  Sender: FDA-Public Use
  Company Number: US-PFIZER INC-2012111495

PATIENT
  Age: 75 Year
  Sex: Female

DRUGS (2)
  1. NORTRIPTYLINE HCL [Interacting]
     Dosage: 10 MG  UNK
  2. PRISTIQ [Suspect]
     Dosage: 50 MG, UNK

REACTIONS (3)
  - AGITATION [None]
  - DRUG INTERACTION [None]
  - INSOMNIA [None]
